FAERS Safety Report 6139234-7 (Version None)
Quarter: 2009Q2

REPORT INFORMATION
  Report Type: 
  Country: None (occurrence: None)
  Receive Date: 20090401
  Receipt Date: 20090321
  Transmission Date: 20091009
  Serious: Yes (Hospitalization)
  Sender: FDA-Public Use
  Company Number: US-BIOGENIDEC-2009BI004248

PATIENT
  Age: 49 Year
  Sex: Female

DRUGS (2)
  1. AVONEX [Suspect]
     Indication: MULTIPLE SCLEROSIS
     Route: 030
     Dates: start: 20030901
  2. AVONEX [Suspect]
     Route: 030
     Dates: start: 19990601, end: 20030801

REACTIONS (4)
  - CALCULUS URINARY [None]
  - PROCEDURAL NAUSEA [None]
  - URINARY INCONTINENCE [None]
  - URINARY TRACT INFECTION [None]
